FAERS Safety Report 7417221-6 (Version None)
Quarter: 2011Q2

REPORT INFORMATION
  Report Type: 
  Country: None (occurrence: None)
  Receive Date: 20110415
  Receipt Date: 20110405
  Transmission Date: 20111010
  Serious: Yes (Other)
  Sender: FDA-Public Use
  Company Number: LT-JNJFOC-20110403453

PATIENT
  Age: 49 Year
  Sex: Female

DRUGS (15)
  1. DOXORUBICIN HCL [Suspect]
     Indication: IRITIC MELANOMA
     Route: 013
  2. ALFA  INTERFERON [Suspect]
     Indication: METASTASES TO LIVER
     Route: 013
  3. FLUOROURACIL [Suspect]
     Indication: METASTASES TO LIVER
     Route: 013
  4. ALFA  INTERFERON [Suspect]
     Indication: RENAL MASS
     Route: 013
  5. DACARBAZINE [Suspect]
     Indication: METASTASES TO LIVER
     Route: 065
  6. DOXORUBICIN HCL [Suspect]
     Indication: RENAL MASS
     Route: 013
  7. FLUOROURACIL [Suspect]
     Indication: IRITIC MELANOMA
     Route: 013
  8. FLUOROURACIL [Suspect]
     Indication: RENAL MASS
     Route: 013
  9. ALFA  INTERFERON [Suspect]
     Indication: IRITIC MELANOMA
     Route: 013
  10. CISPLATIN [Suspect]
     Indication: METASTASES TO LIVER
     Route: 013
  11. CISPLATIN [Suspect]
     Indication: RENAL MASS
     Route: 013
  12. DACARBAZINE [Suspect]
     Indication: IRITIC MELANOMA
     Route: 065
  13. DACARBAZINE [Suspect]
     Indication: RENAL MASS
     Route: 065
  14. DOXORUBICIN HCL [Suspect]
     Indication: METASTASES TO LIVER
     Route: 013
  15. CISPLATIN [Suspect]
     Indication: IRITIC MELANOMA
     Route: 013

REACTIONS (4)
  - DRUG EFFECT DECREASED [None]
  - INCORRECT ROUTE OF DRUG ADMINISTRATION [None]
  - OFF LABEL USE [None]
  - TRANSAMINASES INCREASED [None]
